FAERS Safety Report 7772151-5 (Version None)
Quarter: 2011Q3

REPORT INFORMATION
  Report Type: 
  Country: None (occurrence: None)
  Receive Date: 20110922
  Receipt Date: 20110916
  Transmission Date: 20111222
  Serious: Yes (Other)
  Sender: FDA-Public Use
  Company Number: US-ABBOTT-11P-163-0856169-00

PATIENT
  Age: 83 Year
  Sex: Male

DRUGS (8)
  1. OMEPRAZOLE [Concomitant]
     Indication: GASTROOESOPHAGEAL REFLUX DISEASE
  2. FLUNISOLIDE [Concomitant]
     Indication: HYPERSENSITIVITY
     Dosage: 2 SPRAYS IN EACH NOSTRIL TWICE DAILY
     Route: 045
  3. TRIAMCINOLONE [Concomitant]
     Indication: PSORIASIS
  4. HUMIRA [Suspect]
     Route: 058
     Dates: start: 20110301
  5. ENBREL [Suspect]
     Indication: PRODUCT USED FOR UNKNOWN INDICATION
  6. MULTI-VITAMIN [Concomitant]
     Indication: PRODUCT USED FOR UNKNOWN INDICATION
  7. TRIXAICIN [Concomitant]
     Indication: MUSCULOSKELETAL PAIN
  8. HUMIRA [Suspect]
     Indication: PSORIATIC ARTHROPATHY
     Route: 058
     Dates: end: 20110301

REACTIONS (15)
  - PAIN IN EXTREMITY [None]
  - NEOPLASM [None]
  - INJECTION SITE PAIN [None]
  - CEREBROVASCULAR ACCIDENT [None]
  - HYPERTENSION [None]
  - PAIN [None]
  - SWELLING [None]
  - INJECTION SITE HAEMORRHAGE [None]
  - CONSTIPATION [None]
  - POLLAKIURIA [None]
  - POOR PERIPHERAL CIRCULATION [None]
  - CARDIAC DISORDER [None]
  - DRUG INEFFECTIVE [None]
  - MUSCULOSKELETAL PAIN [None]
  - DRY EYE [None]
